FAERS Safety Report 15573073 (Version 2)
Quarter: 2019Q1

REPORT INFORMATION
  Report Type: Report from Study
  Country: US (occurrence: US)
  Receive Date: 20181031
  Receipt Date: 20190107
  Transmission Date: 20190417
  Serious: No
  Sender: FDA-Public Use
  Company Number: US-SA-2018SA299101

PATIENT
  Age: 20 Year
  Sex: Male

DRUGS (3)
  1. EUCRISA [Concomitant]
     Active Substance: CRISABOROLE
  2. DUPILUMAB [Suspect]
     Active Substance: DUPILUMAB
     Dosage: 300 MG, QOW
     Route: 058
  3. DUPILUMAB [Suspect]
     Active Substance: DUPILUMAB
     Indication: DERMATITIS ATOPIC
     Dosage: 600 MG, 1X
     Route: 058
     Dates: start: 20181031, end: 20181031

REACTIONS (1)
  - Dermatitis [Not Recovered/Not Resolved]
